FAERS Safety Report 24625508 (Version 1)
Quarter: 2024Q4

REPORT INFORMATION
  Report Type: Spontaneous
  Country: US (occurrence: US)
  Receive Date: 20241115
  Receipt Date: 20241115
  Transmission Date: 20250114
  Serious: No
  Sender: ALEXION PHARMACEUTICALS
  Company Number: US-AstraZeneca-CH-00718552A

PATIENT
  Age: 74 Year

DRUGS (1)
  1. LOKELMA [Suspect]
     Active Substance: SODIUM ZIRCONIUM CYCLOSILICATE
     Indication: Blood potassium

REACTIONS (4)
  - Diarrhoea [Unknown]
  - Diabetic nephropathy [Unknown]
  - Blood potassium abnormal [Unknown]
  - Product storage error [Unknown]
